FAERS Safety Report 9734756 (Version 1)
Quarter: 2013Q4

REPORT INFORMATION
  Report Type: Spontaneous
  Country: US (occurrence: US)
  Receive Date: 20131206
  Receipt Date: 20131206
  Transmission Date: 20140711
  Serious: No
  Sender: FDA-Public Use
  Company Number: US-009507513-1312USA001456

PATIENT
  Age: 57 Year
  Sex: Male

DRUGS (1)
  1. ISENTRESS [Suspect]
     Indication: ACQUIRED IMMUNODEFICIENCY SYNDROME
     Dosage: UNK

REACTIONS (2)
  - Virologic failure [Unknown]
  - Drug ineffective [Unknown]
